FAERS Safety Report 4929716-5 (Version None)
Quarter: 2006Q1

REPORT INFORMATION
  Report Type: 
  Country: None (occurrence: None)
  Receive Date: 20060127
  Receipt Date: 20051117
  Transmission Date: 20060701
  Serious: Yes (Other)
  Sender: FDA-Public Use
  Company Number: 2005158406

PATIENT
  Age: 40 Year
  Sex: Female
  Weight: 47.6277 kg

DRUGS (5)
  1. LYRICA [Suspect]
     Indication: EPILEPSY
     Dosage: 300 MG (300 MG, 1 IN 1 D), ORAL
     Route: 048
     Dates: start: 20051113, end: 20051116
  2. MOTRIN [Concomitant]
  3. ATIVAN [Concomitant]
  4. PEGANONE (ETHOTOIN) [Concomitant]
  5. TOPAMAX [Concomitant]

REACTIONS (5)
  - EUPHORIC MOOD [None]
  - FATIGUE [None]
  - FEELING ABNORMAL [None]
  - MENTAL IMPAIRMENT [None]
  - SOMNOLENCE [None]
